FAERS Safety Report 15325056 (Version 1)
Quarter: 2018Q3

REPORT INFORMATION
  Report Type: Spontaneous
  Country: GB (occurrence: GB)
  Receive Date: 20180828
  Receipt Date: 20180828
  Transmission Date: 20181010
  Serious: Yes (Other)
  Sender: FDA-Public Use
  Company Number: GB-ARBOR PHARMACEUTICALS, LLC-GB-2018ARB000889

PATIENT
  Age: 18 Year
  Sex: Female
  Weight: 35 kg

DRUGS (2)
  1. GABAPENTIN ENACARBIL [Suspect]
     Active Substance: GABAPENTIN ENACARBIL
     Indication: MUSCULOSKELETAL PAIN
     Dosage: UNK
  2. GABAPENTIN ENACARBIL [Suspect]
     Active Substance: GABAPENTIN ENACARBIL
     Indication: HYPERAESTHESIA

REACTIONS (1)
  - Eosinophilic colitis [Recovered/Resolved]
